FAERS Safety Report 4339079-4 (Version None)
Quarter: 2004Q2

REPORT INFORMATION
  Report Type: 
  Country: None (occurrence: None)
  Receive Date: 20040412
  Receipt Date: 20040405
  Transmission Date: 20050107
  Serious: No
  Sender: FDA-Public Use
  Company Number: 7783

PATIENT
  Age: 36 Year
  Sex: Female

DRUGS (6)
  1. METHOTREXATE [Suspect]
     Indication: BREAST CANCER
     Dosage: 65 MG IV
     Route: 042
     Dates: start: 20040311
  2. FLUOROURACIL [Suspect]
     Indication: BREAST CANCER
     Dosage: 1020 MG IV
     Route: 042
     Dates: start: 20040311
  3. CYCLOPHOSPHAMIDE [Concomitant]
  4. EPIRUBICIN [Concomitant]
  5. DOMPERIDONE [Concomitant]
  6. LEUCOVORIN CALCIUM [Concomitant]

REACTIONS (3)
  - DIZZINESS [None]
  - DYSPNOEA [None]
  - ERYTHEMA [None]
